FAERS Safety Report 4302917-5 (Version None)
Quarter: 2004Q1

REPORT INFORMATION
  Report Type: 
  Country: None (occurrence: None)
  Receive Date: 20040126
  Receipt Date: 20031016
  Transmission Date: 20041129
  Serious: No
  Sender: FDA-Public Use
  Company Number: USA031050104

PATIENT
  Age: 6 Year
  Sex: Male
  Weight: 19 kg

DRUGS (4)
  1. STRATTERA [Suspect]
     Indication: ATTENTION DEFICIT/HYPERACTIVITY DISORDER
     Dosage: 40 MG, 1 AT BEDTIME
     Dates: start: 20030912
  2. RITALIN (METHYLPEHNIDATE HYDROCHLORIDE) [Concomitant]
  3. CLARINEX [Concomitant]
  4. CONCERTA [Concomitant]

REACTIONS (2)
  - PRESCRIBED OVERDOSE [None]
  - PSYCHOMOTOR HYPERACTIVITY [None]
